FAERS Safety Report 5379424-4 (Version None)
Quarter: 2007Q3

REPORT INFORMATION
  Report Type: 
  Country: None (occurrence: None)
  Receive Date: 20070705
  Receipt Date: 20070629
  Transmission Date: 20080115
  Serious: Yes (Disabling)
  Sender: FDA-Public Use
  Company Number: CA-MERCK-0705CAN00021

PATIENT
  Age: 56 Year
  Sex: Female
  Weight: 74 kg

DRUGS (3)
  1. COZAAR [Suspect]
     Indication: HYPERTENSION
     Route: 048
     Dates: start: 20040512, end: 20070416
  2. PAROXETINE HYDROCHLORIDE [Concomitant]
     Indication: PANIC ATTACK
     Route: 065
     Dates: start: 20020107
  3. PAROXETINE HYDROCHLORIDE [Concomitant]
     Route: 065
     Dates: start: 20020107

REACTIONS (7)
  - C-REACTIVE PROTEIN INCREASED [None]
  - FATIGUE [None]
  - GENERAL PHYSICAL HEALTH DETERIORATION [None]
  - MUSCULAR WEAKNESS [None]
  - MYALGIA [None]
  - RED BLOOD CELL SEDIMENTATION RATE INCREASED [None]
  - UPPER RESPIRATORY TRACT INFECTION [None]
